FAERS Safety Report 10038993 (Version 1)
Quarter: 2014Q1

REPORT INFORMATION
  Report Type: Spontaneous
  Country: US (occurrence: None)
  Receive Date: 20140306
  Receipt Date: 20140306
  Transmission Date: 20141002
  Serious: Yes (Hospitalization)
  Sender: FDA-Public Use
  Company Number: 163-21880-13052824

PATIENT
  Age: 71 Year
  Sex: Male
  Weight: 81.65 kg

DRUGS (7)
  1. REVLIMID [Suspect]
     Indication: PLASMA CELL MYELOMA
     Dosage: 25 MG, 1 IN 1 D, PO
     Route: 048
     Dates: start: 20121004
  2. COREG (CARVEDILOL) (TABLETS) [Concomitant]
  3. CRESTOR (ROSUVASTATIN) (TABLETS) [Concomitant]
  4. DEXAMETHASONE (DEXAMETHASONE) (UNKNOWN) [Concomitant]
  5. LOVAZA (OMEGA-3 MARINE TRIGLYCERIDES) (CAPSULES) [Concomitant]
  6. POTASSIUM GLUCONATE (POTASSIUM GLUCONATE) (UNKNOWN) [Concomitant]
  7. RAMIPRIL (RAMIPRIL) (CAPSULES) [Concomitant]

REACTIONS (1)
  - Cerebrovascular accident [None]
